FAERS Safety Report 6544313-6 (Version None)
Quarter: 2010Q1

REPORT INFORMATION
  Report Type: 
  Country: None (occurrence: None)
  Receive Date: 20100120
  Receipt Date: 20100120
  Transmission Date: 20100710
  Serious: No
  Sender: FDA-Public Use
  Company Number: None

PATIENT
  Age: 95 Year
  Sex: Female
  Weight: 47.6277 kg

DRUGS (3)
  1. REGLAN [Suspect]
     Indication: DRUG USE FOR UNKNOWN INDICATION
     Dosage: 4 TABLETS A DAY EVERY 4 HOURS PO
     Route: 048
     Dates: start: 20100107, end: 20100116
  2. REGLAN [Suspect]
     Indication: NAUSEA
     Dosage: 4 TABLETS A DAY EVERY 4 HOURS PO
     Route: 048
     Dates: start: 20100107, end: 20100116
  3. REGLAN [Concomitant]

REACTIONS (5)
  - DYSARTHRIA [None]
  - IMMOBILE [None]
  - MASTICATION DISORDER [None]
  - TONGUE DISORDER [None]
  - VISION BLURRED [None]
